FAERS Safety Report 18961628 (Version 1)
Quarter: 2021Q1

REPORT INFORMATION
  Report Type: Report from Study
  Country: BR (occurrence: BR)
  Receive Date: 20210303
  Receipt Date: 20210303
  Transmission Date: 20210420
  Serious: Yes (Other)
  Sender: FDA-Public Use
  Company Number: BR-BRISTOL-MYERS SQUIBB COMPANY-BMS-2021-007316

PATIENT
  Age: 49 Year
  Sex: Female

DRUGS (2)
  1. ABATACEPT [Suspect]
     Active Substance: ABATACEPT
     Indication: RHEUMATOID ARTHRITIS
     Dosage: 3 VIALS OF 250 MG MONTHLY
     Route: 042
     Dates: start: 2018
  2. VELIJA [Concomitant]
     Active Substance: DULOXETINE HYDROCHLORIDE
     Indication: ANXIETY
     Dosage: 60 MILLIGRAM
     Route: 065

REACTIONS (1)
  - Thyroid disorder [Recovering/Resolving]

NARRATIVE: CASE EVENT DATE: 20201216
